FAERS Safety Report 8524728-7 (Version None)
Quarter: 2012Q3

REPORT INFORMATION
  Report Type: 
  Country: None (occurrence: None)
  Receive Date: 20120720
  Receipt Date: 20120710
  Transmission Date: 20120928
  Serious: Yes (Hospitalization)
  Sender: FDA-Public Use
  Company Number: CO-ELI_LILLY_AND_COMPANY-CO201207004125

PATIENT
  Age: 60 Year
  Sex: Female

DRUGS (3)
  1. ENALAPRIL MALEATE [Concomitant]
  2. HUMALOG MIX 75/25 [Suspect]
     Indication: TYPE 2 DIABETES MELLITUS
     Dosage: 25 U, TID
     Route: 058
     Dates: start: 20120401, end: 20120523
  3. METFORMIN HYDROCHLORIDE [Concomitant]

REACTIONS (1)
  - HAEMATURIA [None]
